FAERS Safety Report 25958233 (Version 2)
Quarter: 2025Q4

REPORT INFORMATION
  Report Type: Spontaneous
  Country: US (occurrence: US)
  Receive Date: 20251024
  Receipt Date: 20251107
  Transmission Date: 20260117
  Serious: Yes (Other)
  Sender: ABBVIE
  Company Number: US-MLMSERVICE-20251013-PI674045-00102-1

PATIENT
  Age: 56 Year

DRUGS (1)
  1. CITALOPRAM [Suspect]
     Active Substance: CITALOPRAM
     Indication: Depression
     Dosage: 30 MILLIGRAM
     Route: 065

REACTIONS (5)
  - Nystagmus [Recovered/Resolved]
  - Withdrawal syndrome [Recovered/Resolved]
  - Therapy cessation [Unknown]
  - Deafness [Recovered/Resolved]
  - Migraine [Recovered/Resolved]
